FAERS Safety Report 11419580 (Version 1)
Quarter: 2015Q3

REPORT INFORMATION
  Report Type: Spontaneous
  Country: AT (occurrence: AT)
  Receive Date: 20150826
  Receipt Date: 20150826
  Transmission Date: 20151125
  Serious: Yes (Hospitalization, Other)
  Sender: FDA-Public Use
  Company Number: AT-PFIZER INC-2015277020

PATIENT
  Age: 56 Year
  Sex: Female

DRUGS (2)
  1. LYRICA [Suspect]
     Active Substance: PREGABALIN
     Indication: ANXIETY DISORDER
     Dosage: 150 MG, 2X/DAY
     Route: 048
  2. LYRICA [Suspect]
     Active Substance: PREGABALIN
     Indication: TRIGEMINAL NEURALGIA
     Dosage: 300 MG, 2X/DAY
     Route: 048

REACTIONS (13)
  - Therapeutic response unexpected [Unknown]
  - Personality change [Unknown]
  - Condition aggravated [Unknown]
  - Blindness [Unknown]
  - Fall [Unknown]
  - Pre-existing condition improved [Unknown]
  - Vision blurred [Unknown]
  - Swollen tongue [Unknown]
  - Pruritus generalised [Unknown]
  - Slow speech [Unknown]
  - Urinary retention [Unknown]
  - Aggression [Unknown]
  - Cerebral disorder [Unknown]
